FAERS Safety Report 5152576-7 (Version None)
Quarter: 2006Q4

REPORT INFORMATION
  Report Type: 
  Country: None (occurrence: None)
  Receive Date: 20061109
  Receipt Date: 20061030
  Transmission Date: 20070319
  Serious: Yes (Hospitalization, Other)
  Sender: FDA-Public Use
  Company Number: 2006109212

PATIENT
  Age: 62 Year
  Sex: Male

DRUGS (5)
  1. SUTENT [Suspect]
     Indication: METASTATIC RENAL CELL CARCINOMA
     Dosage: 50 MG (50 MG, 1 IN 1 D), ORAL
     Route: 048
     Dates: start: 20060623, end: 20060720
  2. DEXAMETHASONE TAB [Concomitant]
  3. LANSOPRAZOLE [Concomitant]
  4. NYSTATIN [Concomitant]
  5. CENTYL K (BENDROFLUMETHIAZIDE, POTASSIUM CHLORIDE) [Concomitant]

REACTIONS (4)
  - CONFUSIONAL STATE [None]
  - GRAND MAL CONVULSION [None]
  - INTRACRANIAL TUMOUR HAEMORRHAGE [None]
  - METASTASES TO CENTRAL NERVOUS SYSTEM [None]
